FAERS Safety Report 5161019-9 (Version None)
Quarter: 2006Q4

REPORT INFORMATION
  Report Type: 
  Country: None (occurrence: None)
  Receive Date: 20061121
  Receipt Date: 20061106
  Transmission Date: 20070319
  Serious: Yes (Life-Threatening, Hospitalization, Other)
  Sender: FDA-Public Use
  Company Number: 2006135861

PATIENT
  Age: 61 Year
  Sex: Male

DRUGS (7)
  1. ZIPRASIDONE HCL [Suspect]
     Indication: SCHIZOPHRENIA, PARANOID TYPE
     Dosage: 80 MG, ORAL
     Route: 048
     Dates: start: 20060604, end: 20060608
  2. HALDOL [Suspect]
     Indication: SCHIZOPHRENIA, PARANOID TYPE
     Dosage: 30 MG, INTRAVENOUS
     Route: 042
     Dates: start: 20060603, end: 20060608
  3. DIAZEPAM [Concomitant]
  4. RAMIPRIL [Concomitant]
  5. ENOXAPARIN SODIUM [Concomitant]
  6. ESIDRIX [Concomitant]
  7. METOPROLOL SUCCINATE [Concomitant]

REACTIONS (2)
  - GENERAL PHYSICAL HEALTH DETERIORATION [None]
  - NEUROLEPTIC MALIGNANT SYNDROME [None]
